FAERS Safety Report 8137499 (Version 2)
Quarter: 2012Q4

REPORT INFORMATION
  Report Type: 
  Country: US (occurrence: US)
  Receive Date: 20110915
  Receipt Date: 20121003
  Transmission Date: 20130627
  Serious: Yes (Other)
  Sender: FDA-Public Use
  Company Number: US-US-EMD SERONO, INC.-7082020

PATIENT
  Age: 45 None
  Sex: Male
  Weight: 68 kg

DRUGS (6)
  1. REBIF [Suspect]
     Indication: MULTIPLE SCLEROSIS
     Route: 058
     Dates: start: 20100117
  2. TYLENOL [Concomitant]
     Indication: PREMEDICATION
  3. PROVIGIL [Concomitant]
     Indication: FATIGUE
  4. FLOMAX [Concomitant]
     Indication: PRODUCT USED FOR UNKNOWN INDICATION
  5. OXYBUTYNIN [Concomitant]
     Indication: PRODUCT USED FOR UNKNOWN INDICATION
  6. BACLOFEN [Concomitant]
     Indication: MUSCLE SPASMS
     Route: 048
     Dates: start: 20080703

REACTIONS (6)
  - Chlamydial infection [Recovering/Resolving]
  - Herpes virus infection [Recovering/Resolving]
  - Irritability [Unknown]
  - Influenza [Unknown]
  - Urinary tract disorder [Not Recovered/Not Resolved]
  - Constipation [Not Recovered/Not Resolved]
